FAERS Safety Report 8546484-9 (Version None)
Quarter: 2012Q3

REPORT INFORMATION
  Report Type: 
  Country: None (occurrence: None)
  Receive Date: 20120727
  Receipt Date: 20120712
  Transmission Date: 20120928
  Serious: Yes (Death)
  Sender: FDA-Public Use
  Company Number: JP-WATSON-2012-12956

PATIENT
  Age: 55 Year
  Sex: Female

DRUGS (2)
  1. CYCLOSPORINE [Suspect]
     Indication: INTERSTITIAL LUNG DISEASE
     Dosage: UNK
     Route: 042
  2. PREDNISOLONE [Suspect]
     Indication: INTERSTITIAL LUNG DISEASE
     Dosage: 1 MG/KG, DAILY
     Route: 065

REACTIONS (1)
  - RESPIRATORY FAILURE [None]
